FAERS Safety Report 5401237-5 (Version None)
Quarter: 2007Q3

REPORT INFORMATION
  Report Type: 
  Country: None (occurrence: None)
  Receive Date: 20070731
  Receipt Date: 20070724
  Transmission Date: 20080115
  Serious: Yes (Hospitalization)
  Sender: FDA-Public Use
  Company Number: FR-AVENTIS-200712377FR

PATIENT
  Age: 80 Year
  Sex: Male

DRUGS (10)
  1. LASILIX                            /00032601/ [Suspect]
     Route: 048
     Dates: start: 20070413, end: 20070516
  2. HAVLANE [Suspect]
     Indication: INSOMNIA
     Route: 048
     Dates: start: 20070413, end: 20070515
  3. ATARAX                             /00058402/ [Suspect]
     Indication: DRUG USE FOR UNKNOWN INDICATION
     Route: 048
     Dates: start: 20070413, end: 20070514
  4. PLAVIX [Concomitant]
     Indication: DRUG USE FOR UNKNOWN INDICATION
     Route: 048
  5. PREVISCAN                          /00789001/ [Concomitant]
     Indication: DRUG USE FOR UNKNOWN INDICATION
     Route: 048
  6. ADANCOR [Concomitant]
     Indication: DRUG USE FOR UNKNOWN INDICATION
     Route: 048
  7. CARDENSIEL [Concomitant]
     Indication: DRUG USE FOR UNKNOWN INDICATION
     Route: 048
  8. INIPOMP                            /01263201/ [Concomitant]
     Indication: DRUG USE FOR UNKNOWN INDICATION
     Route: 048
  9. ARANESP [Concomitant]
     Indication: DRUG USE FOR UNKNOWN INDICATION
     Route: 058
  10. UMULINE                            /00646003/ [Concomitant]
     Indication: DRUG USE FOR UNKNOWN INDICATION
     Route: 058

REACTIONS (2)
  - CONFUSIONAL STATE [None]
  - SOMNOLENCE [None]
